FAERS Safety Report 17260122 (Version 1)
Quarter: 2020Q1

REPORT INFORMATION
  Report Type: Spontaneous
  Country: US (occurrence: US)
  Receive Date: 20200111
  Receipt Date: 20200111
  Transmission Date: 20200409
  Serious: No
  Sender: FDA-Public Use
  Company Number: US-009507513-2001USA003004

PATIENT
  Sex: Female

DRUGS (4)
  1. MITOTANE [Concomitant]
     Active Substance: MITOTANE
     Indication: ADRENOCORTICAL CARCINOMA
     Dosage: 500 MG DAILY
  2. KEYTRUDA [Suspect]
     Active Substance: PEMBROLIZUMAB
     Indication: ADRENOCORTICAL CARCINOMA
     Dosage: 200 MG OR 2 MG/KG, EVERY 21 DAYS
     Route: 042
  3. MITOTANE [Concomitant]
     Active Substance: MITOTANE
     Dosage: INCREASED EVERY 3 DAYS BY 500 MG
  4. MITOTANE [Concomitant]
     Active Substance: MITOTANE
     Dosage: 1.5 G TWICE DAILY

REACTIONS (1)
  - Product use in unapproved indication [Unknown]
